FAERS Safety Report 6691040-0 (Version None)
Quarter: 2010Q2

REPORT INFORMATION
  Report Type: 
  Country: None (occurrence: None)
  Receive Date: 20100421
  Receipt Date: 20100408
  Transmission Date: 20101027
  Serious: Yes (Hospitalization, Disabling)
  Sender: FDA-Public Use
  Company Number: US-ELI_LILLY_AND_COMPANY-US200911005516

PATIENT
  Sex: Female
  Weight: 55.782 kg

DRUGS (58)
  1. ZYPREXA [Suspect]
     Dosage: 5 MG, EACH EVENING
     Dates: start: 20030201
  2. ZYPREXA [Suspect]
     Dosage: 2.5 MG, EACH EVENING
     Dates: start: 20030312
  3. ZYPREXA [Suspect]
     Dosage: 2.5 MG, 2/D
     Dates: start: 20030508
  4. ZYPREXA [Suspect]
     Dosage: 2.5 MG, EACH EVENING
  5. ZYPREXA [Suspect]
     Dosage: 5 MG, EACH EVENING
     Dates: start: 20031020
  6. ZYPREXA [Suspect]
     Dosage: 10 MG, EACH EVENING
  7. CEPHALEXIN [Concomitant]
     Dosage: 500 MG, 4/D
  8. THEOPHYLLINE [Concomitant]
     Indication: ASTHMA
     Dosage: 200 MG, 2/D
  9. ANTABUSE [Concomitant]
     Dosage: 250 MG, EACH MORNING
  10. LITHIUM [Concomitant]
     Dosage: 300 MG, 2/D
  11. LITHIUM [Concomitant]
     Dosage: 900 MG, EACH EVENING
  12. PAROXETINE HCL [Concomitant]
     Dosage: 40 MG, EACH EVENING
  13. ATIVAN [Concomitant]
     Dosage: 1 MG, 3/D
  14. ATIVAN [Concomitant]
     Dosage: 0.5 MG, 3/D
  15. WELLBUTRIN XL [Concomitant]
     Dosage: 150 MG, EACH MORNING
  16. SYNTHROID [Concomitant]
     Dosage: 0.05 MG, EACH MORNING
  17. SYNTHROID [Concomitant]
     Dosage: 0.075 MG, DAILY (1/D)
  18. SYNTHROID [Concomitant]
     Dosage: 0.15 MG, UNK
  19. WELLBUTRIN SR [Concomitant]
     Dosage: 100 MG, EACH MORNING
  20. WELLBUTRIN SR [Concomitant]
     Dosage: 150 MG, EACH MORNING
  21. WELLBUTRIN SR [Concomitant]
     Dosage: 150 MG, EACH EVENING
  22. CYCLOBENZAPRINE [Concomitant]
     Dosage: 10 MG, 3/D
  23. CYMBALTA [Concomitant]
     Dosage: 30 MG, EACH MORNING
  24. CYMBALTA [Concomitant]
     Dosage: 60 MG, EACH MORNING
  25. CYMBALTA [Concomitant]
     Dosage: 90 MG, EACH MORNING
  26. LEVOXYL [Concomitant]
     Dosage: 125 UG, DAILY (1/D)
  27. AMPICILLIN                         /00000501/ [Concomitant]
     Dosage: 500 MG, 3/D
  28. PROZAC [Concomitant]
     Dosage: 20 MG, EACH MORNING
  29. VISTARIL [Concomitant]
     Dosage: 25 MG, 4/D
  30. LAMICTAL [Concomitant]
     Dosage: 50 MG, EACH EVENING
  31. LAMICTAL [Concomitant]
     Dosage: 25 MG, 2/D
  32. HALCION [Concomitant]
     Dosage: 0.25 MG, EACH EVENING
  33. METOCLOPRAMIDE HYDROCHLORIDE [Concomitant]
     Dosage: 10 MG, 4/D
  34. OMEPRAZOLE [Concomitant]
     Dosage: 20 MG, 2/D
  35. PAMELOR [Concomitant]
     Dosage: 25 MG, EACH EVENING
  36. PAMELOR [Concomitant]
     Dosage: 100 MG, EACH EVENING
  37. PAMELOR [Concomitant]
     Dosage: 150 MG, EACH EVENING
  38. TOFRANIL [Concomitant]
     Dosage: 150 MG, EACH EVENING
  39. CHANTIX                            /05703001/ [Concomitant]
  40. AMOXICILLIN [Concomitant]
     Dosage: 500 MG, 3/D
  41. CIPROFLOXACIN [Concomitant]
     Dosage: 500 MG, 2/D
  42. DIAZEPAM [Concomitant]
     Dosage: 10 MG, UNK
  43. DESYREL [Concomitant]
     Dosage: 100 MG, EACH EVENING
  44. DESYREL [Concomitant]
     Dosage: 150 MG, EACH EVENING
  45. METRONIDAZOLE [Concomitant]
     Dosage: 250 MG, 3/D
  46. DOXYCYCLINE [Concomitant]
     Dosage: 100 MG, 2/D
  47. SEROQUEL [Concomitant]
     Dosage: 100 MG, EACH MORNING
  48. PAXIL [Concomitant]
     Dosage: 25 MG, 2/D
  49. STRATTERA [Concomitant]
     Dosage: 18 MG, EACH MORNING
  50. BUSPAR [Concomitant]
     Dosage: 15 MG, 2/D
  51. HALDOL /SCH/ [Concomitant]
     Dosage: 2.5 MG, EACH EVENING
  52. ARTANE [Concomitant]
     Dosage: 5 MG, EACH EVENING
  53. XANAX [Concomitant]
     Dosage: 0.25 MG, 3/D
  54. XANAX [Concomitant]
     Dosage: 0.25 MG, 4/D
  55. VITAMIN D [Concomitant]
     Dosage: 2000 IU, DAILY (1/D)
  56. ESTROVEN /02150801/ [Concomitant]
     Dosage: 1 D/F, DAILY (1/D)
  57. PREMARIN [Concomitant]
  58. ALBUTEROL [Concomitant]
     Dosage: UNK, AS NEEDED
     Route: 055

REACTIONS (4)
  - DIABETES MELLITUS [None]
  - HAEMATURIA [None]
  - PLATELET COUNT INCREASED [None]
  - WEIGHT INCREASED [None]
